FAERS Safety Report 5875908-0 (Version None)
Quarter: 2008Q3

REPORT INFORMATION
  Report Type: 
  Country: None (occurrence: None)
  Receive Date: 20080910
  Receipt Date: 20080902
  Transmission Date: 20090109
  Serious: Yes (Hospitalization)
  Sender: FDA-Public Use
  Company Number: PHHY2008GT20038

PATIENT
  Age: 80 Year
  Sex: Female

DRUGS (13)
  1. EXELON [Suspect]
     Indication: DEMENTIA
     Dosage: 1.5 MG, QD
     Route: 048
     Dates: start: 20080829
  2. DOXYCYCLINE [Concomitant]
     Dosage: 200 MG, QD
     Route: 048
     Dates: start: 20080815
  3. SOMAZINE [Concomitant]
     Dosage: 1 G, QD
     Route: 042
     Dates: start: 20080815
  4. EPAMIN [Concomitant]
     Dosage: 100 MG, Q8H
     Route: 048
     Dates: start: 20080821
  5. AUGMENTIN '125' [Concomitant]
     Dosage: 1.2 G, Q8H
     Route: 042
     Dates: start: 20080815
  6. ENOXAPARIN SODIUM [Concomitant]
     Dosage: 40 MG EVERY 24 HOURS
     Route: 058
     Dates: start: 20080819
  7. TENORETIC 100 [Concomitant]
     Dosage: HALF A TABLET ORAL EVERY 24 HOURS
     Route: 048
     Dates: start: 20080818
  8. RANITIDINE HCL [Concomitant]
     Dosage: 300 MG, QD
     Route: 048
     Dates: start: 20080815
  9. FOSFOMYCIN [Concomitant]
     Dosage: 1 G, Q8H
     Route: 042
     Dates: start: 20080826
  10. AMIODARONE HCL [Concomitant]
     Dosage: 200 MG EVERY 24 HOURS
     Route: 048
     Dates: start: 20080819
  11. IRBESARTAN [Concomitant]
     Dosage: 150 MG, Q12H
     Route: 048
     Dates: start: 20080815
  12. CON-K [Concomitant]
     Dosage: 30 ML EVERY 24 HOURS
     Route: 048
     Dates: start: 20080819
  13. IPRATROPIUM BROMIDE [Concomitant]
     Dosage: NEBULIZED EVERY 8 HOURS
     Dates: start: 20080805

REACTIONS (5)
  - HYPERCHLORAEMIA [None]
  - HYPERKALAEMIA [None]
  - HYPOMAGNESAEMIA [None]
  - HYPONATRAEMIA [None]
  - THROMBOCYTOPENIA [None]
